FAERS Safety Report 10149057 (Version 1)
Quarter: 2014Q2

REPORT INFORMATION
  Report Type: Spontaneous
  Country: US (occurrence: None)
  Receive Date: 20140430
  Receipt Date: 20140430
  Transmission Date: 20141212
  Serious: No
  Sender: FDA-Public Use
  Company Number: None

PATIENT
  Age: 70 Year
  Sex: Male
  Weight: 79.5 kg

DRUGS (1)
  1. FLUNISOLIDE [Suspect]
     Route: 045
     Dates: start: 20010122, end: 20140402

REACTIONS (1)
  - Drug effect incomplete [None]
